FAERS Safety Report 16011145 (Version 1)
Quarter: 2019Q1

REPORT INFORMATION
  Report Type: Other
  Country: FR (occurrence: FR)
  Receive Date: 20190227
  Receipt Date: 20190227
  Transmission Date: 20190418
  Serious: Yes (Hospitalization)
  Sender: FDA-Public Use
  Company Number: FR-EMCURE PHARMACEUTICALS LTD-2019-EPL-0097

PATIENT
  Age: 33 Year
  Sex: Female

DRUGS (8)
  1. BICNU [Suspect]
     Active Substance: CARMUSTINE
     Indication: HODGKIN^S DISEASE
     Dosage: UNK
     Route: 042
     Dates: start: 201311
  2. BUSILVEX [Suspect]
     Active Substance: BUSULFAN
     Indication: HODGKIN^S DISEASE
     Dosage: UNK
     Route: 042
     Dates: start: 201402
  3. ANTIGON [Suspect]
     Active Substance: COPPER
     Indication: CONTRACEPTION
     Dosage: UNK
     Dates: start: 2013, end: 201407
  4. DESOGESTREL [Suspect]
     Active Substance: DESOGESTREL
     Indication: CONTRACEPTION
     Dosage: UNK
     Route: 048
     Dates: start: 2013, end: 201407
  5. ARACYTINE [Suspect]
     Active Substance: CYTARABINE
     Indication: HODGKIN^S DISEASE
     Dosage: UNK
     Route: 042
     Dates: start: 201311, end: 201402
  6. ETOPOSIDE. [Suspect]
     Active Substance: ETOPOSIDE
     Indication: HODGKIN^S DISEASE
     Dosage: UNK
     Route: 042
     Dates: start: 201311
  7. MELPHALAN. [Suspect]
     Active Substance: MELPHALAN
     Indication: HODGKIN^S DISEASE
     Dosage: UNK
     Route: 042
     Dates: start: 201311, end: 201402
  8. MICROVAL [Suspect]
     Active Substance: LEVONORGESTREL
     Indication: CONTRACEPTION
     Dosage: UNK
     Route: 048
     Dates: start: 201407, end: 20141023

REACTIONS (1)
  - Thrombotic microangiopathy [Not Recovered/Not Resolved]

NARRATIVE: CASE EVENT DATE: 201410
